FAERS Safety Report 7108487-0 (Version None)
Quarter: 2010Q4

REPORT INFORMATION
  Report Type: 
  Country: None (occurrence: None)
  Receive Date: 20101117
  Receipt Date: 20101019
  Transmission Date: 20110411
  Serious: Yes (Other)
  Sender: FDA-Public Use
  Company Number: TH-ROCHE-741224

PATIENT
  Sex: Female

DRUGS (4)
  1. AVASTIN [Suspect]
     Indication: COLORECTAL CANCER
     Route: 065
  2. FLUOROURACIL [Concomitant]
     Indication: COLORECTAL CANCER
  3. OXALIPLATIN [Concomitant]
     Indication: COLORECTAL CANCER
  4. FOLINIC ACID [Concomitant]
     Indication: COLORECTAL CANCER

REACTIONS (1)
  - DISEASE PROGRESSION [None]
